FAERS Safety Report 5162778-1 (Version None)
Quarter: 2006Q4

REPORT INFORMATION
  Report Type: 
  Country: None (occurrence: None)
  Receive Date: 20061201
  Receipt Date: 20061117
  Transmission Date: 20070319
  Serious: Yes (Other)
  Sender: FDA-Public Use
  Company Number: US-ELI_LILLY_AND_COMPANY-US200611004026

PATIENT
  Age: 59 Year
  Sex: Female

DRUGS (7)
  1. EVISTA [Suspect]
     Indication: OSTEOPOROSIS PROPHYLAXIS
     Dosage: 60 MG, UNKNOWN
     Route: 048
     Dates: start: 20000101
  2. DILANTIN [Concomitant]
     Indication: CONVULSION
     Dosage: 250 MG, UNKNOWN
     Route: 048
     Dates: start: 19840101
  3. COZAAR [Concomitant]
     Indication: HYPERTENSION
     Dosage: 50 MG, UNKNOWN
     Route: 065
     Dates: start: 20040101
  4. GINSENG [Concomitant]
     Dosage: UNK, DAILY (1/D)
     Route: 065
  5. CITRACAL [Concomitant]
     Dosage: UNK, UNKNOWN
     Route: 048
  6. ASPIRIN [Concomitant]
     Dosage: 325 MG, DAILY (1/D)
     Route: 048
  7. ASACOL [Concomitant]
     Indication: CROHN'S DISEASE
     Dosage: 2400 MG, UNKNOWN
     Route: 048
     Dates: start: 19900101

REACTIONS (5)
  - AXILLARY MASS [None]
  - CONVULSION [None]
  - DRUG INTERACTION [None]
  - FOLLICLE CENTRE LYMPHOMA, FOLLICULAR GRADE I, II, III [None]
  - TREMOR [None]
